FAERS Safety Report 20168328 (Version 2)
Quarter: 2024Q2

REPORT INFORMATION
  Report Type: Spontaneous
  Country: FR (occurrence: FR)
  Receive Date: 20211210
  Receipt Date: 20240513
  Transmission Date: 20240716
  Serious: Yes (Death, Hospitalization, Other)
  Sender: FDA-Public Use
  Company Number: None

PATIENT

DRUGS (47)
  1. LASIX [Suspect]
     Active Substance: FUROSEMIDE
     Indication: Product used for unknown indication
     Dosage: 40 MG, QD
     Route: 048
  2. ALTACE [Suspect]
     Active Substance: RAMIPRIL
     Indication: Product used for unknown indication
     Dosage: 5 MG, QD
     Route: 048
  3. ESOMEPRAZOLE [Suspect]
     Active Substance: ESOMEPRAZOLE
     Indication: Product used for unknown indication
     Dosage: 20 MG, QD
     Route: 048
  4. PROPRANOLOL HYDROCHLORIDE [Suspect]
     Active Substance: PROPRANOLOL HYDROCHLORIDE
     Indication: Product used for unknown indication
     Dosage: 20 MG, QD
     Route: 048
  5. PROPRANOLOL HYDROCHLORIDE [Suspect]
     Active Substance: PROPRANOLOL HYDROCHLORIDE
     Dosage: 100 MG, BID
     Route: 048
  6. CLONAZEPAM [Suspect]
     Active Substance: CLONAZEPAM
     Indication: Product used for unknown indication
     Dosage: 4 MG, QD
     Route: 048
  7. CLOBAZAM [Suspect]
     Active Substance: CLOBAZAM
     Indication: Product used for unknown indication
     Dosage: 10 MG, Q8H
     Route: 048
  8. CLOBAZAM [Suspect]
     Active Substance: CLOBAZAM
     Dosage: 30 MG, Q8H
     Route: 048
  9. CLOBAZAM [Suspect]
     Active Substance: CLOBAZAM
     Dosage: 10 MG, 3X/DAY (ONCE EVERY 8HOURS)
     Route: 048
  10. ZOPICLONE [Suspect]
     Active Substance: ZOPICLONE
     Indication: Product used for unknown indication
     Dosage: 15 MG, QD
     Route: 048
  11. VERAPAMIL HYDROCHLORIDE [Suspect]
     Active Substance: VERAPAMIL HYDROCHLORIDE
     Indication: Product used for unknown indication
     Dosage: 240 MG, QD
     Route: 048
  12. CELECOXIB [Suspect]
     Active Substance: CELECOXIB
     Indication: Product used for unknown indication
     Dosage: UNK
     Route: 065
  13. SIMVASTATIN [Suspect]
     Active Substance: SIMVASTATIN
     Indication: Product used for unknown indication
     Dosage: 20 MG, QD
     Route: 048
  14. ACETAMINOPHEN [Suspect]
     Active Substance: ACETAMINOPHEN
     Indication: Product used for unknown indication
     Dosage: 100 MILLIGRAM, Q12H
     Route: 048
  15. ACETAMINOPHEN [Suspect]
     Active Substance: ACETAMINOPHEN
     Dosage: 1000 MG, Q12H
     Route: 048
  16. ACETAMINOPHEN [Suspect]
     Active Substance: ACETAMINOPHEN
     Dosage: 200 MG, Q12H
     Route: 048
  17. ACETAMINOPHEN [Suspect]
     Active Substance: ACETAMINOPHEN
     Dosage: 200 MG, BID
     Route: 048
  18. TRIHEXYPHENIDYL HYDROCHLORIDE [Suspect]
     Active Substance: TRIHEXYPHENIDYL HYDROCHLORIDE
     Indication: Product used for unknown indication
     Dosage: 1 MG, QD
     Route: 048
  19. TRIHEXYPHENIDYL HYDROCHLORIDE [Suspect]
     Active Substance: TRIHEXYPHENIDYL HYDROCHLORIDE
     Dosage: 1 MG, QD
     Route: 048
  20. TRIHEXYPHENIDYL HYDROCHLORIDE [Suspect]
     Active Substance: TRIHEXYPHENIDYL HYDROCHLORIDE
     Dosage: 1 MG, QD
     Route: 048
  21. MIANSERIN HYDROCHLORIDE [Suspect]
     Active Substance: MIANSERIN HYDROCHLORIDE
     Indication: Product used for unknown indication
     Dosage: 60 MG, QD
     Route: 048
  22. ALBUTEROL SULFATE [Suspect]
     Active Substance: ALBUTEROL SULFATE
     Indication: Product used for unknown indication
     Dosage: 1 DF, BID
     Route: 045
  23. ALBUTEROL SULFATE [Suspect]
     Active Substance: ALBUTEROL SULFATE
     Dosage: UNK
     Route: 045
  24. NITROGLYCERIN [Suspect]
     Active Substance: NITROGLYCERIN
     Indication: Product used for unknown indication
     Dosage: 10 MG, QD
     Route: 065
  25. NITROGLYCERIN [Suspect]
     Active Substance: NITROGLYCERIN
     Dosage: 10 MG, QD
     Route: 065
  26. NITROGLYCERIN [Suspect]
     Active Substance: NITROGLYCERIN
     Dosage: UNK
     Route: 065
  27. DIACEREIN [Suspect]
     Active Substance: DIACEREIN
     Indication: Product used for unknown indication
     Dosage: 50 MG, Q12H
     Route: 048
  28. DIACEREIN [Suspect]
     Active Substance: DIACEREIN
     Dosage: 100 MG, Q12H
     Route: 048
  29. OMEPRAZOLE [Suspect]
     Active Substance: DONEPEZIL HYDROCHLORIDE\OMEPRAZOLE\OMEPRAZOLE MAGNESIUM
     Indication: Product used for unknown indication
     Dosage: 20 MG, QD
     Route: 048
  30. OMEPRAZOLE [Suspect]
     Active Substance: DONEPEZIL HYDROCHLORIDE\OMEPRAZOLE\OMEPRAZOLE MAGNESIUM
     Dosage: 20 MG
     Route: 048
  31. OXYMETAZOLINE HYDROCHLORIDE\PREDNISOLONE SODIUM PHOSPHATE [Suspect]
     Active Substance: OXYMETAZOLINE HYDROCHLORIDE\PREDNISOLONE SODIUM PHOSPHATE
     Indication: Product used for unknown indication
     Dosage: 1 DF, 1X/DAY
     Route: 045
  32. POLYETHYLENE GLYCOL 3350 [Suspect]
     Active Substance: POLYETHYLENE GLYCOL 3350
     Indication: Product used for unknown indication
     Dosage: 2 DF, QD
     Route: 048
  33. ASPIRIN [Suspect]
     Active Substance: ASPIRIN
     Indication: Product used for unknown indication
     Dosage: 20 MG DAILY/250 MG DAILY
     Route: 048
  34. OMEPRAZOLE MAGNESIUM [Suspect]
     Active Substance: OMEPRAZOLE MAGNESIUM
     Indication: Product used for unknown indication
     Dosage: 20 MG, QD
     Route: 048
  35. OMEPRAZOLE MAGNESIUM [Suspect]
     Active Substance: OMEPRAZOLE MAGNESIUM
     Dosage: 20 MG, QD
     Route: 048
  36. ESOMEPRAZOLE MAGNESIUM [Suspect]
     Active Substance: ESOMEPRAZOLE MAGNESIUM
     Indication: Product used for unknown indication
     Dosage: 20 MG, QD
     Route: 048
  37. ASPIRIN DL-LYSINE [Suspect]
     Active Substance: ASPIRIN DL-LYSINE
     Indication: Product used for unknown indication
     Dosage: 20 MG, QD
     Route: 048
  38. ASPIRIN DL-LYSINE [Suspect]
     Active Substance: ASPIRIN DL-LYSINE
     Dosage: 250 MG, QD
     Route: 048
  39. ASPIRIN LYSINE [Suspect]
     Active Substance: ASPIRIN LYSINE
     Indication: Product used for unknown indication
     Dosage: 20 MG, QD
     Route: 048
  40. ASPIRIN LYSINE [Suspect]
     Active Substance: ASPIRIN LYSINE
     Dosage: 250 MG, QD
     Route: 048
  41. SEREVENT DISKUS [Suspect]
     Active Substance: SALMETEROL XINAFOATE
     Indication: Product used for unknown indication
     Dosage: 1 DF, Q12H
     Route: 045
  42. SEREVENT DISKUS [Suspect]
     Active Substance: SALMETEROL XINAFOATE
     Dosage: 2 DF, Q12H
     Route: 065
  43. SEREVENT DISKUS [Suspect]
     Active Substance: SALMETEROL XINAFOATE
     Dosage: 1 DF,BID (1 PUFF) (ONCE EVERY 12HOURS)
     Route: 045
  44. PIPAMPERONE [Suspect]
     Active Substance: PIPAMPERONE
     Indication: Product used for unknown indication
     Dosage: 20 MG, QD
     Route: 048
  45. PREDNAZOLINE [Suspect]
     Active Substance: PREDNAZOLINE
     Indication: Product used for unknown indication
     Dosage: 1 DF, QD
     Route: 045
  46. OXYGEN [Concomitant]
     Active Substance: OXYGEN
     Indication: Product used for unknown indication
     Dosage: UNK
     Route: 065
  47. OXYMETAZOLINE HYDROCHLORIDE\PREDNISOLONE SODIUM PHOSPHATE [Concomitant]
     Active Substance: OXYMETAZOLINE HYDROCHLORIDE\PREDNISOLONE SODIUM PHOSPHATE
     Indication: Product used for unknown indication
     Dosage: UNK
     Route: 065

REACTIONS (13)
  - Cerebral artery thrombosis [Fatal]
  - Respiratory distress [Fatal]
  - Respiratory failure [Fatal]
  - Areflexia [Fatal]
  - Hemiplegia [Fatal]
  - Cerebrovascular accident [Fatal]
  - Disease recurrence [Fatal]
  - Facial paralysis [Fatal]
  - Ischaemic stroke [Fatal]
  - Nausea [Fatal]
  - Brain scan abnormal [Fatal]
  - Off label use [Unknown]
  - Product use issue [Unknown]
